FAERS Safety Report 11486954 (Version 1)
Quarter: 2015Q3

REPORT INFORMATION
  Report Type: Spontaneous
  Country: IN (occurrence: IN)
  Receive Date: 20150909
  Receipt Date: 20150909
  Transmission Date: 20151125
  Serious: Yes (Hospitalization)
  Sender: FDA-Public Use
  Company Number: IN-UNICHEM LABORATORIES LIMITED-UCM201509-000767

PATIENT
  Age: 72 Year
  Sex: Male
  Weight: 68 kg

DRUGS (10)
  1. ISO?URANE [Suspect]
     Active Substance: ISOFLURANE
  2. GLYCOPYRROLATE. [Concomitant]
     Active Substance: GLYCOPYRROLATE
  3. VECURONIUM [Suspect]
     Active Substance: VECURONIUM BROMIDE
     Route: 042
  4. FENTANYL. [Concomitant]
     Active Substance: FENTANYL
  5. ONDANSETRON [Concomitant]
     Active Substance: ONDANSETRON
  6. METOPROLOL SUCCINATE EXTENDED-RELEASE [Suspect]
     Active Substance: METOPROLOL SUCCINATE
     Indication: HYPERTENSION
  7. MORPHINE [Suspect]
     Active Substance: MORPHINE
  8. NITROUS OXIDE. [Suspect]
     Active Substance: NITROUS OXIDE
  9. AMLODIPINE [Suspect]
     Active Substance: AMLODIPINE BESYLATE
     Indication: HYPERTENSION
  10. PROPOFOL. [Suspect]
     Active Substance: PROPOFOL
     Route: 042

REACTIONS (7)
  - Hypotension [Recovered/Resolved]
  - Lactic acidosis [Unknown]
  - Hypothermia [Recovered/Resolved]
  - Drug interaction [Unknown]
  - Hypoperfusion [Unknown]
  - Toxicity to various agents [Unknown]
  - Urine output decreased [Recovered/Resolved]
